FAERS Safety Report 9505405 (Version 1)
Quarter: 2013Q1

REPORT INFORMATION
  Report Type: Spontaneous
  Country: US (occurrence: None)
  Receive Date: 20130225
  Receipt Date: 20130225
  Transmission Date: 20140127
  Serious: No
  Sender: FDA-Public Use
  Company Number: 369117

PATIENT
  Age: 54 Year
  Sex: Female

DRUGS (2)
  1. VICTOZA (LIRAGLUTIDE) SOLUTION FOR INJECTION, 6MG/ML [Suspect]
     Indication: TYPE 2 DIABETES MELLITUS
     Route: 058
     Dates: start: 201212
  2. METFORMIN [Concomitant]

REACTIONS (6)
  - Weight decreased [None]
  - Abdominal discomfort [None]
  - Decreased appetite [None]
  - Nausea [None]
  - Diarrhoea [None]
  - Abdominal distension [None]
